FAERS Safety Report 8923677 (Version 1)
Quarter: 2012Q4

REPORT INFORMATION
  Report Type: Spontaneous
  Country: US (occurrence: None)
  Receive Date: 20121109
  Receipt Date: 20121109
  Transmission Date: 20130627
  Serious: Yes (Hospitalization)
  Sender: FDA-Public Use
  Company Number: 2011S1000916

PATIENT
  Age: 53 Year
  Sex: Male

DRUGS (13)
  1. CUBICIN [Suspect]
     Indication: EPIDURAL ABSCESS
     Dosage: ;UNK;UNK
     Dates: start: 20111107
  2. CUBICIN [Suspect]
     Indication: STAPHYLOCOCCAL BACTEREMIA
     Dosage: ;UNK;UNK
     Dates: start: 20111107
  3. OXYCODONE [Concomitant]
  4. CELEXA [Concomitant]
  5. NEURONTIN [Concomitant]
  6. MULTIVITAMINS [Concomitant]
  7. FOLIC ACID [Concomitant]
  8. THIAMINE [Concomitant]
  9. OMEPRAZOLE [Concomitant]
  10. SKELAXIN [Concomitant]
  11. COLACE [Concomitant]
  12. TRAZODONE [Concomitant]
  13. SYNTHROID [Concomitant]

REACTIONS (1)
  - Eosinophilic pneumonia [None]
